FAERS Safety Report 4556210-6 (Version None)
Quarter: 2005Q1

REPORT INFORMATION
  Report Type: 
  Country: None (occurrence: None)
  Receive Date: 20050119
  Receipt Date: 20050114
  Transmission Date: 20050727
  Serious: Yes (Disabling)
  Sender: FDA-Public Use
  Company Number: GB-MERCK-0501GBR00160

PATIENT
  Age: 58 Year
  Sex: Female

DRUGS (6)
  1. FOSAMAX [Suspect]
     Indication: OSTEOPOROSIS
     Route: 048
     Dates: start: 20021001, end: 20041209
  2. ESCITALOPRAM OXALATE [Concomitant]
     Indication: DEPRESSION
     Route: 048
  3. ACYCLOVIR [Concomitant]
     Indication: VAGOTOMY
     Route: 048
     Dates: start: 20000101
  4. ACYCLOVIR [Concomitant]
     Indication: PROPHYLAXIS
     Route: 048
     Dates: start: 20000101
  5. PENICILLIN V [Concomitant]
     Indication: BONE MARROW TRANSPLANT
     Route: 048
     Dates: start: 20000101
  6. TIBOLONE [Concomitant]
     Indication: HORMONE REPLACEMENT THERAPY
     Route: 048
     Dates: start: 20000101

REACTIONS (1)
  - VITREOUS DETACHMENT [None]
